FAERS Safety Report 21403536 (Version 5)
Quarter: 2025Q2

REPORT INFORMATION
  Report Type: Report from Study
  Country: US (occurrence: US)
  Receive Date: 20221003
  Receipt Date: 20250410
  Transmission Date: 20250717
  Serious: Yes (Other)
  Sender: ABBVIE
  Company Number: US-ABBVIE-22K-163-4448257-00

PATIENT
  Sex: Female
  Weight: 73.481 kg

DRUGS (7)
  1. IMBRUVICA [Suspect]
     Active Substance: IBRUTINIB
     Indication: Chronic lymphocytic leukaemia
     Dosage: FORM STRENGTH: 420 MILLIGRAM
     Route: 048
     Dates: start: 20200307
  2. Flexerol [Concomitant]
     Indication: Product used for unknown indication
  3. NIFEDIPINE [Concomitant]
     Active Substance: NIFEDIPINE
     Indication: Product used for unknown indication
  4. ALLOPURINOL [Concomitant]
     Active Substance: ALLOPURINOL
     Indication: Product used for unknown indication
  5. IRON [Concomitant]
     Active Substance: IRON
     Indication: Product used for unknown indication
  6. IMODIUM [Concomitant]
     Active Substance: LOPERAMIDE HYDROCHLORIDE
     Indication: Product used for unknown indication
  7. COMPAZINE [Concomitant]
     Active Substance: PROCHLORPERAZINE MALEATE
     Indication: Product used for unknown indication

REACTIONS (12)
  - Blindness transient [Unknown]
  - Blood iron decreased [Unknown]
  - Skin atrophy [Unknown]
  - Weight increased [Unknown]
  - Skin exfoliation [Unknown]
  - Swelling [Unknown]
  - Peripheral swelling [Recovering/Resolving]
  - Gastroenteritis viral [Unknown]
  - Hypersomnia [Unknown]
  - Vomiting [Unknown]
  - Drug hypersensitivity [Unknown]
  - White blood cell count increased [Unknown]
